FAERS Safety Report 21856236 (Version 1)
Quarter: 2023Q1

REPORT INFORMATION
  Report Type: Spontaneous
  Country: US (occurrence: US)
  Receive Date: 20230112
  Receipt Date: 20230112
  Transmission Date: 20230418
  Serious: No
  Sender: FDA-Public Use
  Company Number: US-Teikoku Pharma USA-TPU2022-00989

PATIENT
  Sex: Female
  Weight: 54.707 kg

DRUGS (4)
  1. LIDODERM [Suspect]
     Active Substance: LIDOCAINE
     Indication: Pain
     Route: 061
  2. OXYCODONE [Concomitant]
     Active Substance: OXYCODONE
     Dates: start: 2005
  3. OXYCODONE [Concomitant]
     Active Substance: OXYCODONE
  4. METHADONE [Concomitant]
     Active Substance: METHADONE HYDROCHLORIDE

REACTIONS (1)
  - Therapeutic product effect incomplete [Unknown]
